FAERS Safety Report 10758756 (Version 1)
Quarter: 2015Q1

REPORT INFORMATION
  Report Type: Spontaneous
  Country: US (occurrence: None)
  Receive Date: 20150123
  Receipt Date: 20150123
  Transmission Date: 20150721
  Serious: No
  Sender: FDA-Public Use
  Company Number: 2014TUS010605

PATIENT
  Age: 32 Year
  Sex: Female

DRUGS (3)
  1. UNKNOWN BIRTH CONTROL (CONTRACEPTIVES) [Concomitant]
  2. ENTYVIO [Suspect]
     Active Substance: VEDOLIZUMAB
     Indication: CROHN^S DISEASE
     Dosage: 300 MG, FIRST DOSE, INTRAVENOUS
     Route: 042
     Dates: start: 20140702, end: 20140702
  3. 6-MP (MERCAPTOPURINE) [Concomitant]

REACTIONS (2)
  - No adverse event [None]
  - Inappropriate schedule of drug administration [None]
